FAERS Safety Report 25507127 (Version 3)
Quarter: 2025Q3

REPORT INFORMATION
  Report Type: Spontaneous
  Country: JP (occurrence: JP)
  Receive Date: 20250702
  Receipt Date: 20250715
  Transmission Date: 20251021
  Serious: Yes (Other)
  Sender: BIOGEN
  Company Number: JP-BIOGEN-2025BI01315191

PATIENT
  Age: 41 Year
  Sex: Female

DRUGS (3)
  1. TYSABRI [Suspect]
     Active Substance: NATALIZUMAB
     Indication: Relapsing-remitting multiple sclerosis
     Route: 050
     Dates: start: 20210927
  2. TYSABRI [Suspect]
     Active Substance: NATALIZUMAB
     Route: 050
     Dates: start: 202306
  3. LOXOPROFEN [Concomitant]
     Active Substance: LOXOPROFEN
     Indication: Headache
     Route: 050

REACTIONS (4)
  - Varicella meningitis [Not Recovered/Not Resolved]
  - Breast cancer [Unknown]
  - Genital herpes [Unknown]
  - Rheumatic disorder [Unknown]

NARRATIVE: CASE EVENT DATE: 20240601
